FAERS Safety Report 8367776-2 (Version None)
Quarter: 2012Q2

REPORT INFORMATION
  Report Type: 
  Country: None (occurrence: None)
  Receive Date: 20120517
  Receipt Date: 20120511
  Transmission Date: 20120825
  Serious: Yes (Death)
  Sender: FDA-Public Use
  Company Number: CZ-CELGENEUS-217-21880-12051339

PATIENT
  Sex: Male

DRUGS (6)
  1. REVLIMID [Suspect]
     Dosage: 25 MILLIGRAM
     Route: 048
     Dates: start: 20120328, end: 20120423
  2. BONEFOS [Concomitant]
     Route: 065
     Dates: start: 20110701
  3. DEXAMETHASONE [Concomitant]
     Route: 065
     Dates: start: 20120328
  4. ANTIBIOTICS [Concomitant]
     Route: 065
  5. DEXAMETHASONE [Concomitant]
     Indication: MULTIPLE MYELOMA
     Route: 065
     Dates: start: 20110701
  6. DURAGESIC-100 [Concomitant]
     Route: 065
     Dates: start: 20110701

REACTIONS (2)
  - SEPSIS [None]
  - MULTIPLE MYELOMA [None]
